FAERS Safety Report 12592399 (Version 1)
Quarter: 2016Q3

REPORT INFORMATION
  Report Type: Spontaneous
  Country: US (occurrence: US)
  Receive Date: 20160726
  Receipt Date: 20160726
  Transmission Date: 20161109
  Serious: Yes (Other)
  Sender: FDA-Public Use
  Company Number: US-PFIZER INC-2016354117

PATIENT
  Sex: Female

DRUGS (3)
  1. XANAX [Suspect]
     Active Substance: ALPRAZOLAM
     Indication: ANXIETY
     Dosage: DAILY [2MG-6MG] [1ST TRIMESTER]
     Dates: start: 201604
  2. XANAX [Suspect]
     Active Substance: ALPRAZOLAM
     Dosage: 1 MG, DAILY [2ND AND 3RD TRIMESTER]
     Dates: start: 201205, end: 201210
  3. XANAX [Suspect]
     Active Substance: ALPRAZOLAM
     Dosage: 2 MG, DAILY [DURING BREASTFEEDING]
     Dates: start: 201210, end: 201301

REACTIONS (2)
  - Intentional product misuse [Unknown]
  - Drug dependence [Unknown]
